FAERS Safety Report 11937443 (Version 2)
Quarter: 2016Q1

REPORT INFORMATION
  Report Type: Report from Study
  Country: US (occurrence: US)
  Receive Date: 20160121
  Receipt Date: 20160205
  Transmission Date: 20160526
  Serious: No
  Sender: FDA-Public Use
  Company Number: US-AMGEN-USASL2016005411

PATIENT
  Age: 45 Year
  Sex: Female

DRUGS (1)
  1. ENBREL [Suspect]
     Active Substance: ETANERCEPT
     Indication: RHEUMATOID ARTHRITIS
     Dosage: 50 MG, WEEKLY
     Route: 065
     Dates: start: 20151211

REACTIONS (10)
  - Skin discolouration [Unknown]
  - Nasal congestion [Unknown]
  - Injection site pruritus [Recovered/Resolved]
  - Cough [Unknown]
  - Injection site swelling [Recovered/Resolved]
  - Erythema [Unknown]
  - Pruritus [Unknown]
  - Pain of skin [Unknown]
  - Macule [Unknown]
  - Skin induration [Unknown]

NARRATIVE: CASE EVENT DATE: 20151218
